FAERS Safety Report 14991443 (Version 2)
Quarter: 2018Q4

REPORT INFORMATION
  Report Type: Spontaneous
  Country: US (occurrence: US)
  Receive Date: 20180608
  Receipt Date: 20181129
  Transmission Date: 20190204
  Serious: No
  Sender: FDA-Public Use
  Company Number: US-GLAXOSMITHKLINE-US2018099742

PATIENT
  Age: 56 Year
  Sex: Female
  Weight: 87.75 kg

DRUGS (2)
  1. ASPIRIN. [Concomitant]
     Active Substance: ASPIRIN
  2. NUCALA [Suspect]
     Active Substance: MEPOLIZUMAB
     Indication: ASTHMA
     Dosage: 100 MG, CYC
     Route: 030
     Dates: start: 201710, end: 201805

REACTIONS (6)
  - Joint swelling [Recovering/Resolving]
  - Adverse drug reaction [Unknown]
  - Limb discomfort [Unknown]
  - Weight increased [Unknown]
  - Product use issue [Unknown]
  - Hypoaesthesia [Recovering/Resolving]

NARRATIVE: CASE EVENT DATE: 201801
